FAERS Safety Report 20909107 (Version 1)
Quarter: 2022Q2

REPORT INFORMATION
  Report Type: Spontaneous
  Country: US (occurrence: US)
  Receive Date: 20220603
  Receipt Date: 20220603
  Transmission Date: 20220721
  Serious: No
  Sender: FDA-Public Use
  Company Number: US-OTSUKA-2021_039662

PATIENT
  Age: 34 Year
  Sex: Female

DRUGS (1)
  1. JYNARQUE [Suspect]
     Active Substance: TOLVAPTAN
     Indication: Congenital cystic kidney disease
     Dosage: 1 DF, BID
     Route: 065
     Dates: start: 202003

REACTIONS (2)
  - Thirst [Unknown]
  - Pollakiuria [Unknown]
